FAERS Safety Report 4666028-1 (Version None)
Quarter: 2005Q2

REPORT INFORMATION
  Report Type: 
  Country: None (occurrence: None)
  Receive Date: 20050505
  Receipt Date: 20050204
  Transmission Date: 20051028
  Serious: No
  Sender: FDA-Public Use
  Company Number: 2005USFACT00292

PATIENT
  Sex: Male

DRUGS (1)
  1. FACTIVE [Suspect]
     Indication: RESPIRATORY TRACT INFECTION BACTERIAL
     Dosage: 320.00 MG, QD, ORAL
     Route: 048
     Dates: start: 20050101, end: 20050101

REACTIONS (1)
  - RASH GENERALISED [None]
